FAERS Safety Report 8312486 (Version 8)
Quarter: 2012Q4

REPORT INFORMATION
  Report Type: 
  Country: US (occurrence: US)
  Receive Date: 20111227
  Receipt Date: 20121001
  Transmission Date: 20130627
  Serious: Yes (Other)
  Sender: FDA-Public Use
  Company Number: US-ASTRAZENECA-2011SE76604

PATIENT
  Age: 56 Year
  Sex: Female

DRUGS (1)
  1. CRESTOR [Suspect]
     Route: 048

REACTIONS (8)
  - Accident [Unknown]
  - Injury [Unknown]
  - Speech disorder [Unknown]
  - Fall [Unknown]
  - Craniocerebral injury [Unknown]
  - Brain injury [Unknown]
  - Blood cholesterol increased [Unknown]
  - Headache [Unknown]
